FAERS Safety Report 6179184-3 (Version None)
Quarter: 2009Q2

REPORT INFORMATION
  Report Type: 
  Country: None (occurrence: None)
  Receive Date: 20090505
  Receipt Date: 20090427
  Transmission Date: 20091009
  Serious: Yes (Other)
  Sender: FDA-Public Use
  Company Number: SE-BAYER-200918810GPV

PATIENT
  Sex: Female

DRUGS (2)
  1. MIRENA [Suspect]
     Indication: DRUG USE FOR UNKNOWN INDICATION
     Route: 015
     Dates: start: 20081103, end: 20090417
  2. ENALAPRIL/ ACE AVENGAR [Concomitant]
     Indication: BREAST CANCER

REACTIONS (1)
  - BREAST CANCER [None]
